FAERS Safety Report 4712330-4 (Version None)
Quarter: 2005Q3

REPORT INFORMATION
  Report Type: 
  Country: None (occurrence: None)
  Receive Date: 20050711
  Receipt Date: 20050624
  Transmission Date: 20060218
  Serious: Yes (Hospitalization)
  Sender: FDA-Public Use
  Company Number: 2004BI000267

PATIENT
  Age: 34 Year
  Sex: Female
  Weight: 70.3075 kg

DRUGS (6)
  1. AVONEX [Suspect]
     Indication: MULTIPLE SCLEROSIS
     Dosage: UNKNOWN; QW; IM
     Route: 030
     Dates: start: 20020101, end: 20030501
  2. AVONEX [Suspect]
     Indication: MULTIPLE SCLEROSIS
     Dosage: 30 UG;QW; IM
     Route: 030
     Dates: start: 20030501
  3. ZOLOFT [Concomitant]
  4. SEROQUEL [Concomitant]
  5. FLONASE [Concomitant]
  6. ALBUTEROL [Concomitant]

REACTIONS (4)
  - DEPRESSION [None]
  - DIPLEGIA [None]
  - HEADACHE [None]
  - MULTIPLE SCLEROSIS RELAPSE [None]
